FAERS Safety Report 9726171 (Version 1)
Quarter: 2013Q4

REPORT INFORMATION
  Report Type: Spontaneous
  Country: GB (occurrence: GB)
  Receive Date: 20131203
  Receipt Date: 20131203
  Transmission Date: 20140711
  Serious: Yes (Death, Hospitalization, Other)
  Sender: FDA-Public Use
  Company Number: GB-UCBSA-104482

PATIENT
  Age: 35 Year
  Sex: Female

DRUGS (2)
  1. CO-CODAMOL [Suspect]
  2. GAVISCON [Suspect]
     Indication: DYSPEPSIA
     Dosage: LIQUID/TABLETS

REACTIONS (7)
  - Aortic dissection [Fatal]
  - Bicuspid aortic valve [Fatal]
  - Cardiac tamponade [Fatal]
  - Cardiac failure [Fatal]
  - Vomiting [Unknown]
  - Circumstance or information capable of leading to medication error [Unknown]
  - Pregnancy [Recovered/Resolved]
